FAERS Safety Report 4969267-5 (Version None)
Quarter: 2006Q2

REPORT INFORMATION
  Report Type: 
  Country: None (occurrence: None)
  Receive Date: 20060405
  Receipt Date: 20060323
  Transmission Date: 20061013
  Serious: Yes (Death, Other)
  Sender: FDA-Public Use
  Company Number: 2006041164

PATIENT
  Sex: Male

DRUGS (1)
  1. VIAGRA [Suspect]
     Indication: ERECTILE DYSFUNCTION
     Dates: start: 20040101

REACTIONS (4)
  - HEADACHE [None]
  - METASTASES TO LARGE INTESTINE [None]
  - METASTASES TO LIVER [None]
  - NON-SMALL CELL LUNG CANCER STAGE IV [None]
